FAERS Safety Report 17433232 (Version 1)
Quarter: 2020Q1

REPORT INFORMATION
  Report Type: Spontaneous
  Country: CA (occurrence: CA)
  Receive Date: 20200219
  Receipt Date: 20200219
  Transmission Date: 20200409
  Serious: Yes (Other)
  Sender: FDA-Public Use
  Company Number: CA-PFIZER INC-2020066821

PATIENT
  Age: 46 Year
  Sex: Female

DRUGS (8)
  1. ADALIMUMAB [Suspect]
     Active Substance: ADALIMUMAB
     Dosage: UNK
  2. VEDOLIZUMAB [Suspect]
     Active Substance: VEDOLIZUMAB
     Dosage: UNK
  3. STELARA [Suspect]
     Active Substance: USTEKINUMAB
     Dosage: UNK
     Dates: start: 20190924
  4. STELARA [Suspect]
     Active Substance: USTEKINUMAB
     Indication: CROHN^S DISEASE
     Dosage: 40 MG, UNK (Q 4 WEEKS)
     Dates: start: 201811
  5. INFLIXIMAB [Suspect]
     Active Substance: INFLIXIMAB
     Dosage: UNK
  6. PREDNISONE. [Concomitant]
     Active Substance: PREDNISONE
     Dosage: 20 MG, UNK
     Dates: start: 201910
  7. METHOTREXATE SODIUM. [Suspect]
     Active Substance: METHOTREXATE SODIUM
     Dosage: UNK
     Route: 065
     Dates: end: 20200211
  8. STELARA [Suspect]
     Active Substance: USTEKINUMAB
     Dosage: UNK (8 WEEKS)

REACTIONS (9)
  - Colitis ulcerative [Unknown]
  - Sinusitis [Unknown]
  - Skin warm [Unknown]
  - Gastrointestinal pain [Unknown]
  - Ulcer [Unknown]
  - Arthralgia [Unknown]
  - Dyschezia [Unknown]
  - Treatment failure [Unknown]
  - Fatigue [Unknown]

NARRATIVE: CASE EVENT DATE: 20200211
